FAERS Safety Report 11534202 (Version 1)
Quarter: 2015Q3

REPORT INFORMATION
  Report Type: Spontaneous
  Country: US (occurrence: US)
  Receive Date: 20150922
  Receipt Date: 20150922
  Transmission Date: 20151125
  Serious: No
  Sender: FDA-Public Use
  Company Number: US-BRISTOL-MYERS SQUIBB COMPANY-15011174

PATIENT
  Age: 34 Year
  Sex: Female

DRUGS (3)
  1. COUMADINE [Suspect]
     Active Substance: WARFARIN SODIUM
     Indication: AORTIC STENOSIS
     Dosage: UNK
     Route: 065
     Dates: end: 20100202
  2. LOVENOX [Suspect]
     Active Substance: ENOXAPARIN SODIUM
     Indication: PRODUCT USED FOR UNKNOWN INDICATION
     Route: 065
  3. COUMADINE [Suspect]
     Active Substance: WARFARIN SODIUM
     Indication: THROMBOSIS

REACTIONS (4)
  - International normalised ratio abnormal [Unknown]
  - Maternal exposure during pregnancy [Unknown]
  - Palpitations [Unknown]
  - Inappropriate schedule of drug administration [Unknown]

NARRATIVE: CASE EVENT DATE: 20100202
